FAERS Safety Report 7299732-X (Version None)
Quarter: 2011Q1

REPORT INFORMATION
  Report Type: 
  Country: None (occurrence: None)
  Receive Date: 20110217
  Receipt Date: 20100805
  Transmission Date: 20110831
  Serious: Yes (Hospitalization, Other)
  Sender: FDA-Public Use
  Company Number: US-BAYER-201020519NA

PATIENT
  Sex: Female
  Weight: 78.182 kg

DRUGS (18)
  1. YAZ [Suspect]
     Indication: CONTRACEPTION
     Route: 048
     Dates: start: 20060801, end: 20090401
  2. YAZ [Suspect]
     Indication: ACNE
  3. YASMIN [Suspect]
     Indication: ACNE
  4. SINGULAIR [Concomitant]
     Dosage: UNK
     Dates: start: 20080201
  5. YAZ [Suspect]
     Indication: PREMENSTRUAL SYNDROME
  6. AVELOX [Concomitant]
  7. YASMIN [Suspect]
     Indication: PREMENSTRUAL SYNDROME
  8. SINGULAIR [Concomitant]
     Dosage: 10 MG, UNK
     Route: 048
  9. LEVAQUIN [Concomitant]
     Dosage: 500 MG, UNK
     Route: 048
  10. LORCET-HD [Concomitant]
     Dosage: UNK
     Dates: start: 20080401
  11. ALBUTEROL [Concomitant]
     Dosage: UNK UNK, PRN
  12. LEXAPRO [Concomitant]
  13. YAZ [Suspect]
     Indication: MENSTRUATION IRREGULAR
  14. YASMIN [Suspect]
     Indication: MENSTRUATION IRREGULAR
  15. ZYRTEC [Concomitant]
  16. VALTREX [Concomitant]
  17. YASMIN [Suspect]
     Indication: CONTRACEPTION
     Route: 048
     Dates: start: 20060801, end: 20090401
  18. UNCODEABLE ^UNCLASSIFIABLE^ [Concomitant]

REACTIONS (9)
  - CHOLELITHIASIS [None]
  - CELLULITIS [None]
  - DEHYDRATION [None]
  - ABDOMINAL PAIN UPPER [None]
  - NAUSEA [None]
  - VOMITING [None]
  - WEIGHT INCREASED [None]
  - CHOLECYSTITIS CHRONIC [None]
  - ABDOMINAL DISCOMFORT [None]
